FAERS Safety Report 21719704 (Version 2)
Quarter: 2023Q1

REPORT INFORMATION
  Report Type: Report from Study
  Country: CN (occurrence: None)
  Receive Date: 20221213
  Receipt Date: 20230315
  Transmission Date: 20230417
  Serious: Yes (Hospitalization)
  Sender: FDA-Public Use
  Company Number: CN-ROCHE-3236424

PATIENT
  Sex: Male

DRUGS (4)
  1. ATEZOLIZUMAB [Suspect]
     Active Substance: ATEZOLIZUMAB
     Indication: Hepatocellular carcinoma
     Dosage: ON 22/JUL/2022, HE RECEIVED SUBSEQUENT DOSE OF ATEZOLIZUMAB 1200 MG EVERY 3 WEEKS
     Route: 041
     Dates: start: 20220701, end: 20220701
  2. BEVACIZUMAB [Suspect]
     Active Substance: BEVACIZUMAB
     Indication: Hepatocellular carcinoma
     Dosage: ON 22/JUL/2022, HE RECEIVED SUBSEQUENT DOSE OF BEVACIZUMAB 1095 MG EVERY 3 WEEKS
     Route: 041
     Dates: start: 20220701, end: 20220701
  3. ENTECAVIR [Concomitant]
     Active Substance: ENTECAVIR
     Indication: Chronic hepatitis B
     Dates: start: 20220622
  4. REDUCED GLUTATHIONE [Concomitant]
     Indication: Chronic hepatitis B
     Dates: start: 20220703

REACTIONS (1)
  - Upper gastrointestinal haemorrhage [Recovered/Resolved]

NARRATIVE: CASE EVENT DATE: 20220801
